FAERS Safety Report 10927843 (Version 1)
Quarter: 2015Q1

REPORT INFORMATION
  Report Type: Report from Study
  Country: DE (occurrence: DE)
  Receive Date: 20150319
  Receipt Date: 20150319
  Transmission Date: 20150721
  Serious: Yes (Hospitalization)
  Sender: FDA-Public Use
  Company Number: PHHO2015DE002491

PATIENT
  Age: 65 Year
  Sex: Male
  Weight: 81.9 kg

DRUGS (7)
  1. DOXEPIN [Concomitant]
     Active Substance: DOXEPIN
     Indication: DEPRESSION
     Dosage: 25 MG, QD
     Route: 048
  2. LGH447 [Suspect]
     Active Substance: INVESTIGATIONAL PRODUCT
     Indication: PLASMA CELL MYELOMA
     Dosage: 300 MG, QD
     Route: 048
     Dates: start: 20150128
  3. OMEPRAZOLE. [Concomitant]
     Active Substance: OMEPRAZOLE
     Indication: CHRONIC GASTRITIS
     Dosage: 20 MG (Q2D)
     Route: 048
  4. OPIPRAMOL [Concomitant]
     Active Substance: OPIPRAMOL
     Indication: DEPRESSION
     Dosage: 25 MG, BID
     Route: 048
  5. SILDENAFIL. [Concomitant]
     Active Substance: SILDENAFIL
     Indication: ERECTILE DYSFUNCTION
     Dosage: 25 MG, QD
     Route: 048
     Dates: start: 2014
  6. CHOLECALCIFEROL [Concomitant]
     Active Substance: CHOLECALCIFEROL
     Indication: PROPHYLAXIS
     Dosage: 10 UG, QD
     Route: 048
  7. ZOLEDRONIC ACID [Suspect]
     Active Substance: ZOLEDRONIC ACID
     Indication: PROPHYLAXIS
     Dosage: 4 MG, Q3MO (Q3M)
     Route: 042

REACTIONS (1)
  - Gingival disorder [Unknown]

NARRATIVE: CASE EVENT DATE: 20150210
